FAERS Safety Report 25790839 (Version 1)
Quarter: 2025Q3

REPORT INFORMATION
  Report Type: Spontaneous
  Country: US (occurrence: None)
  Receive Date: 20250911
  Receipt Date: 20250911
  Transmission Date: 20251021
  Serious: Yes (Hospitalization)
  Sender: FDA-CTU
  Company Number: None

PATIENT
  Age: 40 Year
  Sex: Male
  Weight: 75.9 kg

DRUGS (3)
  1. FLUOROURACIL [Suspect]
     Active Substance: FLUOROURACIL
     Dates: end: 20250610
  2. BEVACIZUMAB [Suspect]
     Active Substance: BEVACIZUMAB
     Dates: end: 20250527
  3. ELOXATIN [Suspect]
     Active Substance: OXALIPLATIN
     Dates: end: 20250527

REACTIONS (8)
  - Colorectal cancer [None]
  - Intestinal polyp [None]
  - Enterocolitis infectious [None]
  - Ileus [None]
  - Proctalgia [None]
  - Defaecation urgency [None]
  - Postoperative abscess [None]
  - Pelvic fluid collection [None]

NARRATIVE: CASE EVENT DATE: 20250821
